FAERS Safety Report 9276862 (Version 1)
Quarter: 2013Q2

REPORT INFORMATION
  Report Type: Spontaneous
  Country: US (occurrence: US)
  Receive Date: 20130507
  Receipt Date: 20130507
  Transmission Date: 20140414
  Serious: Yes (Death, Hospitalization, Other)
  Sender: FDA-Public Use
  Company Number: US-BAXTER-2013BAX013182

PATIENT
  Age: 90 Year
  Sex: Male

DRUGS (2)
  1. DIANEAL LOW CALCIUM [Suspect]
     Indication: PERITONEAL DIALYSIS
     Route: 033
  2. EXTRANEAL [Suspect]
     Indication: PERITONEAL DIALYSIS
     Route: 033

REACTIONS (7)
  - Myocardial infarction [Fatal]
  - Neoplasm malignant [Fatal]
  - Sepsis [Fatal]
  - Device related infection [Fatal]
  - Septic shock [Unknown]
  - Pneumonia [Unknown]
  - Peritonitis bacterial [Unknown]
